FAERS Safety Report 5527491-7 (Version None)
Quarter: 2007Q4

REPORT INFORMATION
  Report Type: 
  Country: None (occurrence: None)
  Receive Date: 20071128
  Receipt Date: 20071120
  Transmission Date: 20080405
  Serious: Yes (Disabling, Other)
  Sender: FDA-Public Use
  Company Number: FR-BRISTOL-MYERS SQUIBB COMPANY-13994991

PATIENT
  Age: 62 Year
  Sex: Female

DRUGS (1)
  1. PRAVASTATINE WINTHROP [Suspect]
     Dosage: TABLET FORM.
     Route: 048
     Dates: start: 20070201

REACTIONS (2)
  - RETINAL VASCULAR DISORDER [None]
  - VISUAL DISTURBANCE [None]
